FAERS Safety Report 11241698 (Version 4)
Quarter: 2016Q2

REPORT INFORMATION
  Report Type: Report from Study
  Country: GB (occurrence: GB)
  Receive Date: 20150706
  Receipt Date: 20160627
  Transmission Date: 20160815
  Serious: Yes (Other)
  Sender: FDA-Public Use
  Company Number: GB-ROCHE-1602163

PATIENT
  Age: 37 Year

DRUGS (8)
  1. BLINDED PERTUZUMAB [Suspect]
     Active Substance: PERTUZUMAB
     Indication: HER-2 POSITIVE BREAST CANCER
     Dosage: LOADING DOSE
     Route: 042
  2. ZOLADEX [Concomitant]
     Active Substance: GOSERELIN ACETATE
  3. DENOSUMAB [Concomitant]
     Active Substance: DENOSUMAB
  4. TRASTUZUMAB [Suspect]
     Active Substance: TRASTUZUMAB
     Indication: HER-2 POSITIVE BREAST CANCER
     Route: 042
  5. TRASTUZUMAB [Suspect]
     Active Substance: TRASTUZUMAB
     Dosage: MAINTENANCE DOSE
     Route: 042
  6. DOCETAXEL. [Suspect]
     Active Substance: DOCETAXEL
     Indication: HER-2 POSITIVE BREAST CANCER
     Dosage: 60MG/M2 X 6 - 75% DOSE CYCLE 1
     Route: 065
  7. TRASTUZUMAB EMTANSINE [Suspect]
     Active Substance: ADO-TRASTUZUMAB EMTANSINE
     Indication: HER-2 POSITIVE BREAST CANCER
     Route: 065
  8. LETROZOLE. [Concomitant]
     Active Substance: LETROZOLE

REACTIONS (4)
  - Papilloedema [Unknown]
  - Metastases to meninges [Unknown]
  - Headache [Unknown]
  - Carbohydrate antigen 15-3 increased [Unknown]
